FAERS Safety Report 8123455 (Version 5)
Quarter: 2013Q2

REPORT INFORMATION
  Report Type: Report from Study
  Country: CA (occurrence: CA)
  Receive Date: 20110907
  Receipt Date: 20130621
  Transmission Date: 20140414
  Serious: Yes (Other)
  Sender: FDA-Public Use
  Company Number: PHHY2011CA78223

PATIENT
  Age: 82 Year
  Sex: Male

DRUGS (4)
  1. ACLASTA [Suspect]
     Indication: OSTEOPOROSIS
     Dosage: UNK
     Route: 042
     Dates: start: 20090821
  2. ACLASTA [Suspect]
     Dosage: UNK
     Route: 042
     Dates: start: 20100924
  3. ACLASTA [Suspect]
     Dosage: UNK
     Route: 042
     Dates: start: 20120604
  4. ACLASTA [Suspect]
     Dosage: UNK
     Route: 042
     Dates: start: 201303

REACTIONS (5)
  - Impaired healing [Unknown]
  - Back pain [Unknown]
  - Hypokinesia [Unknown]
  - Poor venous access [Unknown]
  - Inappropriate schedule of drug administration [Unknown]
